FAERS Safety Report 15049710 (Version 1)
Quarter: 2018Q2

REPORT INFORMATION
  Report Type: Spontaneous
  Country: US (occurrence: US)
  Receive Date: 20180622
  Receipt Date: 20180622
  Transmission Date: 20180711
  Serious: No
  Sender: FDA-Public Use
  Company Number: US-ADAMAS PHARMA, LLC-2018ADA00829

PATIENT
  Sex: Female
  Weight: 70.3 kg

DRUGS (29)
  1. GOCOVRI [Suspect]
     Active Substance: AMANTADINE
     Dosage: 137 MG, 1X/DAY AT BEDTIME
     Dates: start: 20180222, end: 20180227
  2. GOCOVRI [Suspect]
     Active Substance: AMANTADINE
     Dosage: 137 MG, 2X/DAY
     Route: 048
     Dates: start: 2018, end: 2018
  3. AMANTADINE. [Suspect]
     Active Substance: AMANTADINE HYDROCHLORIDE
     Dosage: 250 MG, 1X/DAY
     Dates: start: 2018
  4. NORTRIPTYLIN [Concomitant]
     Active Substance: NORTRIPTYLINE
  5. AMANTADINE. [Suspect]
     Active Substance: AMANTADINE HYDROCHLORIDE
     Dosage: 250 MG, 1X/DAY
     Dates: start: 201803, end: 2018
  6. NALTREXONE [Concomitant]
     Active Substance: NALTREXONE
  7. LORAZEPAM. [Concomitant]
     Active Substance: LORAZEPAM
  8. LEVOTHYROXIN [Concomitant]
     Active Substance: LEVOTHYROXINE
  9. CARB/LEVO ER [Concomitant]
  10. GOCOVRI [Suspect]
     Active Substance: AMANTADINE
     Dosage: 274 MG, 1X/DAY AT BEDTIME
     Route: 048
     Dates: start: 20180228, end: 201803
  11. PEPTO-BISMOL [Concomitant]
     Active Substance: BISMUTH SUBSALICYLATE
  12. MIRALAX [Concomitant]
     Active Substance: POLYETHYLENE GLYCOL 3350
  13. PEPCID AC [Concomitant]
     Active Substance: FAMOTIDINE
  14. ZOLPIDEM [Concomitant]
     Active Substance: ZOLPIDEM\ZOLPIDEM TARTRATE
  15. NEUPRO [Concomitant]
     Active Substance: ROTIGOTINE
  16. TYLENOL [Concomitant]
     Active Substance: ACETAMINOPHEN
  17. AMANTADINE SYRUP [Concomitant]
  18. PREDNISONE. [Concomitant]
     Active Substance: PREDNISONE
  19. AMANTADINE. [Suspect]
     Active Substance: AMANTADINE HYDROCHLORIDE
     Dosage: 300 MG, 1X/DAY
     Dates: start: 2018, end: 2018
  20. ZOMIG [Concomitant]
     Active Substance: ZOLMITRIPTAN
  21. SUMATRIPTAN. [Concomitant]
     Active Substance: SUMATRIPTAN
  22. SIMETHICONE (DIMETHICONE) [Concomitant]
     Active Substance: DIMETHICONE
  23. MUCINEX [Concomitant]
     Active Substance: GUAIFENESIN
  24. MAGNESIUM [Concomitant]
     Active Substance: MAGNESIUM
  25. PROPRANOLOL [Concomitant]
     Active Substance: PROPRANOLOL HYDROCHLORIDE
  26. TRIAMT/HCTZ [Concomitant]
     Active Substance: HYDROCHLOROTHIAZIDE\TRIAMTERENE
  27. GOCOVRI [Suspect]
     Active Substance: AMANTADINE
     Dosage: 274 MG, 1X/DAY AT BEDTIME
     Route: 048
     Dates: start: 2018, end: 2018
  28. PROBIOTIC [Concomitant]
     Active Substance: PROBIOTICS NOS
  29. VITAMIN D3 [Concomitant]
     Active Substance: CHOLECALCIFEROL

REACTIONS (6)
  - Peripheral swelling [Recovered/Resolved]
  - Joint swelling [Recovered/Resolved]
  - Rash macular [Unknown]
  - Lip swelling [Unknown]
  - Visual impairment [Not Recovered/Not Resolved]
  - Hallucination, visual [Not Recovered/Not Resolved]

NARRATIVE: CASE EVENT DATE: 2018
